FAERS Safety Report 5449023-4 (Version None)
Quarter: 2007Q3

REPORT INFORMATION
  Report Type: 
  Country: None (occurrence: None)
  Receive Date: 20070911
  Receipt Date: 20070910
  Transmission Date: 20080115
  Serious: Yes (Hospitalization)
  Sender: FDA-Public Use
  Company Number: GB-BRISTOL-MYERS SQUIBB COMPANY-13851613

PATIENT
  Age: 68 Year
  Sex: Female

DRUGS (7)
  1. ABATACEPT [Suspect]
     Indication: RHEUMATOID ARTHRITIS
     Route: 042
     Dates: start: 20030501
  2. METHOTREXATE [Concomitant]
     Dates: start: 20061029
  3. FOLIC ACID [Concomitant]
     Dates: start: 20001001
  4. CODEINE PHOSPHATE AND ACETAMINOPHEN [Concomitant]
     Dates: start: 20010101
  5. CALCICHEW [Concomitant]
     Dates: start: 20061116
  6. CELEBREX [Concomitant]
     Dates: start: 20030101
  7. BENDROFLUAZIDE [Concomitant]
     Dates: start: 20060308

REACTIONS (1)
  - ESSENTIAL TREMOR [None]
